FAERS Safety Report 14468484 (Version 3)
Quarter: 2018Q1

REPORT INFORMATION
  Report Type: Spontaneous
  Country: US (occurrence: US)
  Receive Date: 20180131
  Receipt Date: 20180307
  Transmission Date: 20180509
  Serious: Yes (Life-Threatening, Hospitalization)
  Sender: FDA-Public Use
  Company Number: US-HORIZON-KRY-0031-2018

PATIENT
  Sex: Male

DRUGS (1)
  1. KRYSTEXXA [Suspect]
     Active Substance: PEGLOTICASE
     Indication: GOUT
     Dosage: 8 MG Q 2 WEEKS
     Route: 042

REACTIONS (3)
  - Myocardial infarction [Recovering/Resolving]
  - Gouty tophus [Unknown]
  - Ill-defined disorder [Unknown]
